FAERS Safety Report 12161638 (Version 6)
Quarter: 2016Q3

REPORT INFORMATION
  Report Type: Spontaneous
  Country: ES (occurrence: ES)
  Receive Date: 20160309
  Receipt Date: 20160929
  Transmission Date: 20161109
  Serious: Yes (Hospitalization, Other)
  Sender: FDA-Public Use
  Company Number: ES-AMGEN-ESPSP2016027875

PATIENT
  Age: 64 Year
  Sex: Female

DRUGS (21)
  1. METHOTREXATE. [Concomitant]
     Active Substance: METHOTREXATE
     Dosage: 10 MG, WEEKLY (4 TABLETS OF 2.5 MG EVERY MONDAY)
  2. ACFOL [Concomitant]
     Active Substance: FOLIC ACID
     Dosage: 2 DF, WEEKLY (1 TABLET EVERY TUESDAY AND 1 TABLET EVERY THURSDAY)
  3. PREDNISONE. [Concomitant]
     Active Substance: PREDNISONE
     Indication: RHEUMATOID ARTHRITIS
     Dosage: 2.5 MG, ALTERNATE DAY
  4. PREVENCOR                          /01326102/ [Concomitant]
     Active Substance: ATORVASTATIN CALCIUM
     Indication: HYPERCHOLESTEROLAEMIA
     Dosage: 10 MG, 1X/DAY (1 TABLET EVERY 24 HOURS)
  5. PREVENCOR [Concomitant]
     Active Substance: ATORVASTATIN CALCIUM
     Indication: HYPERCHOLESTEROLAEMIA
     Dosage: 10 MG, 1X/DAY (1 TABLET EVERY 24 HOURS)
  6. RIVOTRIL [Concomitant]
     Active Substance: CLONAZEPAM
     Dosage: 2 MG, 1X/DAY (1 TABLET EVERY 24 HOURS)
  7. RIVOTRIL [Concomitant]
     Active Substance: CLONAZEPAM
     Dosage: 1 MG, 1X/DAY (HALF A TABLET EVERY 24 HOURS)
  8. RIVOTRIL [Concomitant]
     Active Substance: CLONAZEPAM
     Dosage: 1 MG, 1X/DAY (HALF A TABLET EVERY 24 HOURS)
  9. PREDNISONE. [Concomitant]
     Active Substance: PREDNISONE
     Dosage: 2.5MG, ALTERNATE DAY
  10. REXER [Concomitant]
     Active Substance: MIRTAZAPINE
     Indication: DEPRESSION
     Dosage: 15 MG, 1X/DAY (1 TABLET EVERY 24 HOURS)
  11. DOBUPAL [Concomitant]
     Active Substance: VENLAFAXINE HYDROCHLORIDE
     Indication: DEPRESSION
     Dosage: 75 MG, 1X/DAY (1 TABLET EVERY 24 HOURS)
  12. RIVOTRIL [Concomitant]
     Active Substance: CLONAZEPAM
     Dosage: 2 MG, 1X/DAY (1 TABLET EVERY 24 HOURS)
  13. METHOTREXATE. [Concomitant]
     Active Substance: METHOTREXATE
     Indication: RHEUMATOID ARTHRITIS
     Dosage: 10 MG, WEEKLY (4 TABLETS OF 2.5 MG EVERY MONDAY)
  14. DORMODOR [Concomitant]
     Indication: SLEEP DISORDER
     Dosage: 1 TABLET, DAILY
  15. PREDNISONE. [Concomitant]
     Active Substance: PREDNISONE
     Dosage: 1MG ALTERNATE DAYS
  16. METHOTREXATE. [Concomitant]
     Active Substance: METHOTREXATE
     Dosage: 10 MG, WEEKLY (4 TABLETS OF 2.5 MG EVERY MONDAY)
  17. INACID [Concomitant]
     Active Substance: INDOMETHACIN
     Indication: INFLAMMATION
     Dosage: 1 DF (TABLET), 1X/DAY (EVERY 24 HOURS )
  18. FORSTEO [Concomitant]
     Active Substance: TERIPARATIDE
     Indication: OSTEOPOROSIS
     Dosage: 1 DF, 1X/DAY (1 INJECTION DAILY)
  19. ENBREL [Suspect]
     Active Substance: ETANERCEPT
     Indication: RHEUMATOID ARTHRITIS
     Dosage: 50 MG, WEEKLY
     Route: 058
     Dates: start: 20100101
  20. METHOTREXATE. [Concomitant]
     Active Substance: METHOTREXATE
     Dosage: 10 MG, WEEKLY (4 TABLETS OF 2.5 MG EVERY MONDAY)
  21. XERISTAR [Concomitant]
     Active Substance: DULOXETINE HYDROCHLORIDE
     Indication: DEPRESSION
     Dosage: 90 MG, DAILY (30 MG + 60 MG EVERY 24 HOURS)

REACTIONS (12)
  - Hip fracture [Not Recovered/Not Resolved]
  - Fall [Recovered/Resolved]
  - Condition aggravated [Unknown]
  - Injection site pain [Not Recovered/Not Resolved]
  - Spinal compression fracture [Unknown]
  - Kyphosis [Unknown]
  - Fatigue [Not Recovered/Not Resolved]
  - Injection site pain [Recovered/Resolved]
  - Spinal fracture [Recovered/Resolved]
  - Back pain [Not Recovered/Not Resolved]
  - Pelvic fracture [Not Recovered/Not Resolved]
  - Injection site erythema [Not Recovered/Not Resolved]

NARRATIVE: CASE EVENT DATE: 201503
